FAERS Safety Report 25412593 (Version 1)
Quarter: 2025Q2

REPORT INFORMATION
  Report Type: Spontaneous
  Country: US (occurrence: None)
  Receive Date: 20250606
  Receipt Date: 20250606
  Transmission Date: 20250716
  Serious: Yes (Other)
  Sender: FDA-CTU
  Company Number: None

PATIENT
  Age: 43 Year
  Sex: Female
  Weight: 60.75 kg

DRUGS (7)
  1. HYLENEX RECOMBINANT [Suspect]
     Active Substance: HYALURONIDASE (HUMAN RECOMBINANT)
     Indication: Dermal filler reaction
     Route: 050
     Dates: start: 20250108, end: 20250124
  2. HYLENEX RECOMBINANT [Suspect]
     Active Substance: HYALURONIDASE (HUMAN RECOMBINANT)
     Indication: Skin discolouration
  3. HYLENEX RECOMBINANT [Suspect]
     Active Substance: HYALURONIDASE (HUMAN RECOMBINANT)
     Indication: Skin discolouration
  4. Collagen peptides [Concomitant]
  5. hyaluronic acid supplement [Concomitant]
  6. QUERCETIN [Concomitant]
     Active Substance: QUERCETIN
  7. DEVICE [Suspect]
     Active Substance: DEVICE

REACTIONS (4)
  - Eye disorder [None]
  - Eyelid disorder [None]
  - Soft tissue disorder [None]
  - Facial asymmetry [None]

NARRATIVE: CASE EVENT DATE: 20250131
